FAERS Safety Report 4949773-X (Version None)
Quarter: 2006Q1

REPORT INFORMATION
  Report Type: 
  Country: None (occurrence: None)
  Receive Date: 20060315
  Receipt Date: 20060224
  Transmission Date: 20060701
  Serious: Yes (Hospitalization)
  Sender: FDA-Public Use
  Company Number: FR200602004751

PATIENT
  Age: 77 Year
  Sex: Female

DRUGS (6)
  1. FORTEO [Suspect]
     Indication: OSTEOPOROSIS
     Dosage: 20 UG, DAILY (1/D), SUBCUTANEOUS
     Route: 058
     Dates: start: 20050928
  2. FORTEO [Concomitant]
  3. COVERSYL (PERINDOPRIL) [Concomitant]
  4. SECRAL (ACEBUTOLOL HYDROCHLORIDE) [Concomitant]
  5. CORTANCYL (PREDNISONE) [Concomitant]
  6. STRUCTUM (CHONDROITIN SULFATE SODIUM) [Concomitant]

REACTIONS (3)
  - DISEASE RECURRENCE [None]
  - FATIGUE [None]
  - MYOCARDIAL INFARCTION [None]
